FAERS Safety Report 18211126 (Version 2)
Quarter: 2020Q3

REPORT INFORMATION
  Report Type: Other
  Country: JP (occurrence: JP)
  Receive Date: 20200830
  Receipt Date: 20200916
  Transmission Date: 20201104
  Serious: Yes (Hospitalization, Other)
  Sender: FDA-Public Use
  Company Number: JP-ROCHE-2667607

PATIENT
  Age: 85 Year
  Sex: Male
  Weight: 55 kg

DRUGS (2)
  1. EMICIZUMAB. [Suspect]
     Active Substance: EMICIZUMAB
     Indication: HAEMOPHILIA A WITHOUT INHIBITORS
     Route: 058
     Dates: start: 20190903
  2. EMICIZUMAB. [Suspect]
     Active Substance: EMICIZUMAB
     Route: 058
     Dates: start: 20191001

REACTIONS (4)
  - Sigmoidectomy [Unknown]
  - Intentional product use issue [Unknown]
  - Laryngeal granuloma [Recovered/Resolved]
  - Off label use [Unknown]

NARRATIVE: CASE EVENT DATE: 20191001
